FAERS Safety Report 6535287-2 (Version None)
Quarter: 2010Q1

REPORT INFORMATION
  Report Type: 
  Country: None (occurrence: None)
  Receive Date: 20100113
  Receipt Date: 20100106
  Transmission Date: 20100710
  Serious: Yes (Disabling, Other)
  Sender: FDA-Public Use
  Company Number: GB-AMGEN-UK216087

PATIENT
  Age: 45 Year
  Sex: Female
  Weight: 75 kg

DRUGS (4)
  1. ARANESP [Suspect]
     Indication: DRUG USE FOR UNKNOWN INDICATION
     Route: 042
     Dates: start: 20050930, end: 20060308
  2. EPREX [Suspect]
     Route: 058
     Dates: start: 20050308, end: 20050930
  3. NEORECORMON [Suspect]
     Route: 065
     Dates: start: 19971208, end: 20030922
  4. AZATHIOPRINE [Concomitant]
     Route: 065
     Dates: start: 20050101, end: 20060523

REACTIONS (3)
  - APLASIA PURE RED CELL [None]
  - DRUG INEFFECTIVE [None]
  - THYMOMA [None]
